FAERS Safety Report 10960427 (Version 5)
Quarter: 2017Q4

REPORT INFORMATION
  Report Type: Spontaneous
  Country: IE (occurrence: IE)
  Receive Date: 20150327
  Receipt Date: 20171219
  Transmission Date: 20180320
  Serious: Yes (Hospitalization)
  Sender: FDA-Public Use
  Company Number: IE-OTSUKA-US-2015-11329

PATIENT
  Age: 36 Year
  Sex: Male

DRUGS (12)
  1. ARIPIPRAZOLE. [Suspect]
     Active Substance: ARIPIPRAZOLE
     Indication: SCHIZOPHRENIA
     Dosage: 10 MG, QD
     Route: 048
  2. ARIPIPRAZOLE. [Suspect]
     Active Substance: ARIPIPRAZOLE
     Dosage: 45 MG, QD
     Route: 048
  3. OLANZAPINE. [Concomitant]
     Active Substance: OLANZAPINE
     Indication: PRODUCT USED FOR UNKNOWN INDICATION
     Dosage: 5 MG, BID
     Route: 048
  4. OLANZAPINE. [Concomitant]
     Active Substance: OLANZAPINE
     Indication: PRODUCT USED FOR UNKNOWN INDICATION
     Dosage: 5 MG, BID
     Route: 048
  5. OLANZAPINE. [Concomitant]
     Active Substance: OLANZAPINE
     Dosage: 2.5 MG, UNK
     Route: 048
  6. ABILIFY MAINTENA [Suspect]
     Active Substance: ARIPIPRAZOLE
     Indication: BIPOLAR DISORDER
  7. ARIPIPRAZOLE. [Suspect]
     Active Substance: ARIPIPRAZOLE
     Dosage: 30 MG, UNK
     Route: 048
  8. CLOZAPINE. [Concomitant]
     Active Substance: CLOZAPINE
     Indication: PRODUCT USED FOR UNKNOWN INDICATION
     Dosage: UNK
     Route: 065
  9. ARIPIPRAZOLE. [Suspect]
     Active Substance: ARIPIPRAZOLE
     Indication: BIPOLAR DISORDER
     Dosage: 20 MG, UNK
     Route: 048
  10. LORAZEPAM. [Concomitant]
     Active Substance: LORAZEPAM
     Indication: PRODUCT USED FOR UNKNOWN INDICATION
     Dosage: 1 TAB PRN
     Route: 048
  11. ABILIFY MAINTENA [Suspect]
     Active Substance: ARIPIPRAZOLE
     Indication: SCHIZOPHRENIA
     Dosage: 400 MG, QM
     Route: 030
     Dates: start: 20150226, end: 201504
  12. LORAZEPAM. [Concomitant]
     Active Substance: LORAZEPAM
     Indication: PRODUCT USED FOR UNKNOWN INDICATION
     Dosage: 1 DF, PRN
     Route: 048

REACTIONS (7)
  - Hallucination [Not Recovered/Not Resolved]
  - Delusion [Not Recovered/Not Resolved]
  - Off label use [Unknown]
  - Psychotic disorder [Not Recovered/Not Resolved]
  - Abnormal behaviour [Not Recovered/Not Resolved]
  - Hallucinations, mixed [Not Recovered/Not Resolved]
  - Paranoia [Not Recovered/Not Resolved]
